FAERS Safety Report 12238129 (Version 1)
Quarter: 2016Q2

REPORT INFORMATION
  Report Type: Spontaneous
  Country: US (occurrence: None)
  Receive Date: 20160404
  Receipt Date: 20160404
  Transmission Date: 20160815
  Serious: Yes (Other)
  Sender: FDA-Public Use
  Company Number: None

PATIENT
  Age: 73 Year
  Sex: Male
  Weight: 70.31 kg

DRUGS (7)
  1. VITAMIN C [Suspect]
     Active Substance: ASCORBIC ACID
  2. CUR CUMIN [Concomitant]
  3. LOW DOSE ASPIRIN [Concomitant]
     Active Substance: ASPIRIN
  4. HCTZ [Concomitant]
     Active Substance: HYDROCHLOROTHIAZIDE
  5. LIPITOR [Concomitant]
     Active Substance: ATORVASTATIN CALCIUM
  6. REFRESH OPTIVE ADVANCED [Suspect]
     Active Substance: CARBOXYMETHYLCELLULOSE SODIUM\GLYCERIN\POLYSORBATE 80
     Indication: EYE PRURITUS
     Route: 031
     Dates: start: 20160322, end: 20160323
  7. LESINOPRIL [Concomitant]

REACTIONS (5)
  - Urticaria [None]
  - Pruritus [None]
  - Erythema [None]
  - Blister [None]
  - Product substitution issue [None]

NARRATIVE: CASE EVENT DATE: 20160323
